FAERS Safety Report 4402499-3 (Version None)
Quarter: 2004Q2

REPORT INFORMATION
  Report Type: 
  Country: None (occurrence: None)
  Receive Date: 20040618
  Receipt Date: 20040304
  Transmission Date: 20050107
  Serious: No
  Sender: FDA-Public Use
  Company Number: US-JNJFOC-20040301653

PATIENT
  Age: 19 Year
  Sex: Female
  Weight: 58.0604 kg

DRUGS (2)
  1. ORTHO EVRA [Suspect]
     Indication: CONTRACEPTION
     Dosage: 1 DOSES 3 IN 4 WEEK TRANSDERMAL
     Route: 062
     Dates: start: 20030901
  2. ALLEREST (ALLEREST) [Concomitant]

REACTIONS (3)
  - METRORRHAGIA [None]
  - NASOPHARYNGITIS [None]
  - PYREXIA [None]
